FAERS Safety Report 11821018 (Version 1)
Quarter: 2015Q4

REPORT INFORMATION
  Report Type: Spontaneous
  Country: US (occurrence: None)
  Receive Date: 20151209
  Receipt Date: 20151209
  Transmission Date: 20160305
  Serious: Yes (Disabling)
  Sender: FDA-Public Use
  Company Number: None

PATIENT
  Age: 43 Year
  Sex: Male
  Weight: 77.11 kg

DRUGS (4)
  1. LEVAQUIN [Suspect]
     Active Substance: LEVOFLOXACIN
     Indication: PROSTATITIS
     Dosage: 1 PILL
     Route: 048
     Dates: start: 20151008, end: 20151009
  2. VITAMIN C [Concomitant]
     Active Substance: ASCORBIC ACID
  3. MEN^S MULTIPLE VITAMIN [Concomitant]
  4. MAGNESIUM [Concomitant]
     Active Substance: MAGNESIUM

REACTIONS (20)
  - Tendon rupture [None]
  - Poor quality sleep [None]
  - Mood swings [None]
  - Muscular weakness [None]
  - Agitation [None]
  - Tinnitus [None]
  - Muscle spasms [None]
  - Pain [None]
  - Amnesia [None]
  - Arthralgia [None]
  - Burning sensation [None]
  - Mental disorder [None]
  - Anxiety [None]
  - Feeling abnormal [None]
  - Fatigue [None]
  - Activities of daily living impaired [None]
  - Insomnia [None]
  - Palpitations [None]
  - Cognitive disorder [None]
  - Asthenia [None]

NARRATIVE: CASE EVENT DATE: 20151008
